FAERS Safety Report 6182461-3 (Version None)
Quarter: 2009Q2

REPORT INFORMATION
  Report Type: 
  Country: None (occurrence: None)
  Receive Date: 20090507
  Receipt Date: 20090424
  Transmission Date: 20091009
  Serious: Yes (Death, Hospitalization, Other)
  Sender: FDA-Public Use
  Company Number: GB-ROCHE-629698

PATIENT
  Age: 66 Year
  Sex: Female

DRUGS (9)
  1. XELODA [Suspect]
     Route: 048
     Dates: start: 20090119, end: 20090221
  2. AVASTIN [Suspect]
     Route: 065
  3. OXALIPLATIN [Suspect]
     Route: 042
     Dates: start: 20090119
  4. BUSCOPAN [Concomitant]
  5. CEFUROXIME [Concomitant]
     Indication: PYREXIA
     Route: 042
  6. CIPROFLOXACIN [Concomitant]
     Route: 042
     Dates: start: 20090221, end: 20090301
  7. HALOPERIDOL [Concomitant]
     Dates: start: 20090225, end: 20090301
  8. MORPHINE [Concomitant]
  9. NEUPOGEN [Concomitant]
     Indication: NEUTROPENIA

REACTIONS (3)
  - COLITIS ISCHAEMIC [None]
  - DIARRHOEA [None]
  - MIGRAINE [None]
